FAERS Safety Report 6678572-6 (Version None)
Quarter: 2010Q2

REPORT INFORMATION
  Report Type: 
  Country: None (occurrence: None)
  Receive Date: 20100409
  Receipt Date: 20100409
  Transmission Date: 20101027
  Serious: Yes (Hospitalization)
  Sender: FDA-Public Use
  Company Number: None

PATIENT
  Age: 40 Year
  Sex: Female
  Weight: 104.3273 kg

DRUGS (1)
  1. JANUMET [Suspect]
     Indication: DIABETES MELLITUS
     Dosage: 1 PILL BID PO
     Route: 048
     Dates: start: 20100408, end: 20100408

REACTIONS (10)
  - CHEST DISCOMFORT [None]
  - DYSPNOEA [None]
  - FATIGUE [None]
  - HEART RATE INCREASED [None]
  - LUNG DISORDER [None]
  - PALPITATIONS [None]
  - SENSATION OF HEAVINESS [None]
  - THROAT TIGHTNESS [None]
  - URTICARIA [None]
  - WHEEZING [None]
